FAERS Safety Report 24977528 (Version 2)
Quarter: 2025Q3

REPORT INFORMATION
  Report Type: Spontaneous
  Country: US (occurrence: US)
  Receive Date: 20250217
  Receipt Date: 20250901
  Transmission Date: 20251020
  Serious: No
  Sender: BRISTOL-MYERS SQUIBB COMPANY
  Company Number: US-BRISTOL-MYERS SQUIBB COMPANY-2025-022853

PATIENT
  Age: 70 Year
  Sex: Male
  Weight: 127.01 kg

DRUGS (2)
  1. LENALIDOMIDE [Suspect]
     Active Substance: LENALIDOMIDE
     Indication: Plasma cell myeloma
     Route: 048
  2. LENALIDOMIDE [Suspect]
     Active Substance: LENALIDOMIDE
     Route: 048
     Dates: end: 20240214

REACTIONS (2)
  - Urinary tract infection [Recovered/Resolved]
  - Dysuria [Unknown]

NARRATIVE: CASE EVENT DATE: 20250110
